FAERS Safety Report 7284309-2 (Version None)
Quarter: 2011Q1

REPORT INFORMATION
  Report Type: 
  Country: None (occurrence: None)
  Receive Date: 20110209
  Receipt Date: 20101229
  Transmission Date: 20110831
  Serious: Yes (Hospitalization, Other)
  Sender: FDA-Public Use
  Company Number: US-BAXTER-2008BH002487

PATIENT
  Age: 39 Year
  Sex: Female
  Weight: 49 kg

DRUGS (9)
  1. HEPARIN SODIUM INJECTION [Suspect]
     Route: 042
     Dates: start: 20080101
  2. KLONOPIN [Concomitant]
     Indication: PRODUCT USED FOR UNKNOWN INDICATION
     Route: 065
  3. HEPARIN SODIUM INJECTION [Suspect]
     Indication: ENDOSCOPY
     Route: 058
     Dates: start: 20080101, end: 20080201
  4. EFFEXOR XR [Concomitant]
     Indication: PRODUCT USED FOR UNKNOWN INDICATION
     Route: 065
  5. DILAUDID [Concomitant]
     Indication: PRODUCT USED FOR UNKNOWN INDICATION
     Route: 042
  6. BENADRYL [Concomitant]
     Indication: PRODUCT USED FOR UNKNOWN INDICATION
     Route: 065
  7. HEPARIN SODIUM INJECTION [Suspect]
     Route: 042
     Dates: start: 20080101
  8. HEPARIN SODIUM INJECTION [Suspect]
     Indication: COLONOSCOPY
     Route: 058
     Dates: start: 20080101, end: 20080201
  9. MORPHINE [Concomitant]
     Indication: MIGRAINE
     Route: 065
     Dates: start: 20080101

REACTIONS (25)
  - BLOOD CALCIUM DECREASED [None]
  - MENORRHAGIA [None]
  - LOSS OF CONSCIOUSNESS [None]
  - DEEP VEIN THROMBOSIS [None]
  - HYPOTENSION [None]
  - PYREXIA [None]
  - MUSCLE SPASMS [None]
  - BLOOD POTASSIUM DECREASED [None]
  - NEPHROPATHY [None]
  - ANAEMIA [None]
  - THROMBOPHLEBITIS SUPERFICIAL [None]
  - DIZZINESS [None]
  - DYSPNOEA [None]
  - DEHYDRATION [None]
  - NAUSEA [None]
  - COAGULOPATHY [None]
  - ASTHENIA [None]
  - METABOLIC SYNDROME [None]
  - PLATELET COUNT DECREASED [None]
  - ABDOMINAL PAIN UPPER [None]
  - OLIGOMENORRHOEA [None]
  - PRESYNCOPE [None]
  - VOMITING [None]
  - BLOOD MAGNESIUM DECREASED [None]
  - VISION BLURRED [None]
